FAERS Safety Report 14311068 (Version 1)
Quarter: 2017Q4

REPORT INFORMATION
  Report Type: Spontaneous
  Country: US (occurrence: US)
  Receive Date: 20171221
  Receipt Date: 20171221
  Transmission Date: 20180321
  Serious: No
  Sender: FDA-Public Use
  Company Number: US-SA-2017SA113931

PATIENT
  Age: 81 Year
  Sex: Female
  Weight: 90 kg

DRUGS (6)
  1. ADVAIR HFA [Concomitant]
     Active Substance: FLUTICASONE PROPIONATE\SALMETEROL XINAFOATE
  2. PLAVIX [Suspect]
     Active Substance: CLOPIDOGREL BISULFATE
     Indication: CEREBROVASCULAR ACCIDENT
     Route: 048
  3. LEVOTHYROXINE. [Concomitant]
     Active Substance: LEVOTHYROXINE
  4. PRESERVISION [Concomitant]
     Active Substance: MINERALS\VITAMINS
  5. HYDRA [Concomitant]
     Active Substance: ISONIAZID
  6. METOPROLOL 15 MG [Concomitant]

REACTIONS (2)
  - Epistaxis [Unknown]
  - Contusion [Unknown]
